FAERS Safety Report 7497146-0 (Version None)
Quarter: 2011Q2

REPORT INFORMATION
  Report Type: 
  Country: None (occurrence: None)
  Receive Date: 20110523
  Receipt Date: 20110511
  Transmission Date: 20111010
  Serious: Yes (Hospitalization, Other)
  Sender: FDA-Public Use
  Company Number: CO-TYCO HEALTHCARE/MALLINCKRODT-T201100704

PATIENT
  Sex: Male

DRUGS (1)
  1. OPTIRAY 300 [Suspect]
     Dosage: UNK
     Route: 042
     Dates: start: 20110331, end: 20110331

REACTIONS (5)
  - PARAESTHESIA [None]
  - BRONCHOSPASM [None]
  - PRURITUS [None]
  - RASH [None]
  - BLOOD PRESSURE DECREASED [None]
